FAERS Safety Report 19037424 (Version 1)
Quarter: 2021Q1

REPORT INFORMATION
  Report Type: Spontaneous
  Country: US (occurrence: US)
  Receive Date: 20210322
  Receipt Date: 20210322
  Transmission Date: 20210420
  Serious: Yes (Death)
  Sender: FDA-Public Use
  Company Number: None

PATIENT
  Age: 74 Year
  Sex: Male
  Weight: 97.65 kg

DRUGS (12)
  1. DAURISMO [Suspect]
     Active Substance: GLASDEGIB
     Indication: ACUTE MYELOID LEUKAEMIA
     Route: 048
     Dates: start: 20210225, end: 20210322
  2. PANTOPRAZOLE SODIUM. [Concomitant]
     Active Substance: PANTOPRAZOLE SODIUM
  3. PROCHLORPERAZINE MALEATE. [Concomitant]
     Active Substance: PROCHLORPERAZINE MALEATE
  4. ACYCLOVIR. [Concomitant]
     Active Substance: ACYCLOVIR
  5. ALLOPURINOL. [Concomitant]
     Active Substance: ALLOPURINOL
  6. FLUCONAZOLE. [Concomitant]
     Active Substance: FLUCONAZOLE
  7. TRAZODONE HYDROCHLORIDE. [Concomitant]
     Active Substance: TRAZODONE HYDROCHLORIDE
  8. DICLOFENAC SODIUM. [Concomitant]
     Active Substance: DICLOFENAC SODIUM
  9. OXYCODONE HYDROCHLORIDE. [Concomitant]
     Active Substance: OXYCODONE HYDROCHLORIDE
  10. POLYETHYLENE GLYCOL 3350. [Concomitant]
     Active Substance: POLYETHYLENE GLYCOL 3350
  11. LEVOFLOXACIN. [Concomitant]
     Active Substance: LEVOFLOXACIN
  12. CYTARABINE (PF) [Concomitant]

REACTIONS (1)
  - Death [None]

NARRATIVE: CASE EVENT DATE: 20210322
